FAERS Safety Report 19602246 (Version 1)
Quarter: 2021Q3

REPORT INFORMATION
  Report Type: Spontaneous
  Country: BR (occurrence: BR)
  Receive Date: 20210723
  Receipt Date: 20210723
  Transmission Date: 20211014
  Serious: Yes (Congenital Anomaly, Other)
  Sender: FDA-Public Use
  Company Number: BR-ABBVIE-21K-020-4000997-00

PATIENT
  Sex: Male

DRUGS (1)
  1. SKYRIZI [Suspect]
     Active Substance: RISANKIZUMAB-RZAA
     Indication: PSORIASIS
     Dosage: UNSPECIFIED DOSE, FIRST DOSE
     Route: 058
     Dates: start: 20210701

REACTIONS (3)
  - Skin exfoliation [Unknown]
  - Oedema peripheral [Unknown]
  - Wound infection [Unknown]

NARRATIVE: CASE EVENT DATE: 202107
